FAERS Safety Report 6942868-0 (Version None)
Quarter: 2010Q3

REPORT INFORMATION
  Report Type: 
  Country: None (occurrence: None)
  Receive Date: 20100826
  Receipt Date: 20100817
  Transmission Date: 20110219
  Serious: Yes (Death)
  Sender: FDA-Public Use
  Company Number: US-ROCHE-722417

PATIENT
  Sex: Female

DRUGS (2)
  1. XELODA [Suspect]
     Route: 048
  2. XELODA [Suspect]
     Route: 048

REACTIONS (1)
  - DEATH [None]
